FAERS Safety Report 18909992 (Version 1)
Quarter: 2021Q1

REPORT INFORMATION
  Report Type: Spontaneous
  Country: US (occurrence: US)
  Receive Date: 20210218
  Receipt Date: 20210218
  Transmission Date: 20210420
  Serious: No
  Sender: FDA-Public Use
  Company Number: None

PATIENT
  Age: 56 Year
  Sex: Female

DRUGS (8)
  1. CLOBETASOL 0.05% OINTMENT [Concomitant]
     Active Substance: CLOBETASOL
  2. KETOCONAZOLE 2% SHAMPOO [Concomitant]
     Active Substance: KETOCONAZOLE
  3. AZELAIC ACID GEL 15% [Concomitant]
     Active Substance: AZELAIC ACID
  4. OMEPRAZOLE 20MG OTC [Concomitant]
  5. TALTZ [Suspect]
     Active Substance: IXEKIZUMAB
     Indication: PSORIASIS
     Dosage: ?          OTHER FREQUENCY:1X,THEN 80MG Q 2WK;?
     Route: 058
     Dates: start: 20210127
  6. CLOBETASOL 0.05% EMOL. FOAM [Concomitant]
  7. VALACYCLOVIR [Concomitant]
     Active Substance: VALACYCLOVIR HYDROCHLORIDE
  8. ALEVE [Concomitant]
     Active Substance: NAPROXEN SODIUM

REACTIONS (6)
  - Post procedural complication [None]
  - Lip swelling [None]
  - Injection site erythema [None]
  - Rash [None]
  - Rash macular [None]
  - Injection site pain [None]

NARRATIVE: CASE EVENT DATE: 20210127
